FAERS Safety Report 8618182-4 (Version None)
Quarter: 2012Q3

REPORT INFORMATION
  Report Type: 
  Country: None (occurrence: None)
  Receive Date: 20120824
  Receipt Date: 20120815
  Transmission Date: 20120928
  Serious: No
  Sender: FDA-Public Use
  Company Number: US-ASTRAZENECA-2012SE57928

PATIENT
  Age: 56 Year
  Sex: Female

DRUGS (23)
  1. AMLODIPINE [Concomitant]
  2. LORATADINE [Concomitant]
  3. ACETAMINOPHEN [Concomitant]
  4. HYDROCORTISONE ACETATE [Concomitant]
  5. ALLEGRA [Concomitant]
  6. DIABETIC TUSS [Concomitant]
  7. HYDROCORTISONE [Concomitant]
  8. OMEPRAZOLE [Suspect]
     Route: 048
     Dates: start: 20120223
  9. FLONASE [Concomitant]
  10. ATENOLOL [Concomitant]
  11. MIRALAX [Concomitant]
  12. HYDROCHLOROTHIAZIDE [Concomitant]
  13. IBUPROFEN [Concomitant]
  14. BENZONATATE [Concomitant]
  15. NEXIUM [Concomitant]
  16. CLARITIN [Concomitant]
  17. AMOXICILLIN [Concomitant]
  18. HYDROCORTISONE-PRAMOXINE [Concomitant]
  19. ALBUTEROL [Concomitant]
  20. TRAZODONE HYDROCHLORIDE [Concomitant]
  21. PRAVASTATIN [Concomitant]
  22. TYLENOL [Concomitant]
  23. MOMETASONE FUROATE [Concomitant]

REACTIONS (3)
  - ACUTE SINUSITIS [None]
  - TINNITUS [None]
  - ATROPHIC VULVOVAGINITIS [None]
